FAERS Safety Report 18995439 (Version 1)
Quarter: 2021Q1

REPORT INFORMATION
  Report Type: Spontaneous
  Country: NL (occurrence: NL)
  Receive Date: 20210310
  Receipt Date: 20210310
  Transmission Date: 20210420
  Serious: Yes (Death)
  Sender: FDA-Public Use
  Company Number: NL-SUN PHARMACEUTICAL INDUSTRIES LTD-2021RR-285108

PATIENT
  Age: 38 Year
  Sex: Male
  Weight: 70 kg

DRUGS (3)
  1. VENLAFAXINE [Suspect]
     Active Substance: VENLAFAXINE HYDROCHLORIDE
     Indication: DEPRESSION
     Dosage: UNK
     Route: 065
     Dates: start: 20210205
  2. OLANZAPINE SMELTTABLET  5MG / BRAND NAME NOT SPECIFIEDOLANZAPINE SM... [Concomitant]
     Indication: PRODUCT USED FOR UNKNOWN INDICATION
     Dosage: SMELTTABLET, 5 MG (MILLIGRAM) ()
     Route: 065
  3. OXAZEPAM TABLET 50MG / BRAND NAME NOT SPECIFIEDOXAZEPAM TABLET 50MG [Concomitant]
     Indication: PRODUCT USED FOR UNKNOWN INDICATION
     Dosage: TABLET, 50 MG (MILLIGRAM) ()
     Route: 065

REACTIONS (1)
  - Completed suicide [Fatal]

NARRATIVE: CASE EVENT DATE: 20210216
